FAERS Safety Report 22320032 (Version 8)
Quarter: 2024Q3

REPORT INFORMATION
  Report Type: Report from Study
  Country: ES (occurrence: ES)
  Receive Date: 20230515
  Receipt Date: 20240726
  Transmission Date: 20241016
  Serious: Yes (Hospitalization, Other)
  Sender: PFIZER
  Company Number: ES-009507513-2305ESP000878

PATIENT
  Age: 53 Year
  Sex: Female
  Weight: 60 kg

DRUGS (10)
  1. CARBOPLATIN [Suspect]
     Active Substance: CARBOPLATIN
     Indication: Non-small cell lung cancer stage IV
     Dosage: 5 AUC, 1Q3W
     Route: 042
     Dates: start: 20230410, end: 20230410
  2. CARBOPLATIN [Suspect]
     Active Substance: CARBOPLATIN
     Dosage: 5 AUC, 1Q3W
     Route: 042
     Dates: start: 20230509
  3. PEMETREXED [Suspect]
     Active Substance: PEMETREXED
     Indication: Non-small cell lung cancer stage IV
     Dosage: 831.5 MILLIGRAM, 1Q3W
     Route: 042
     Dates: start: 20230410, end: 20230410
  4. PEMETREXED [Suspect]
     Active Substance: PEMETREXED
     Dosage: 623 MILLIGRAM, 1Q3W
     Route: 042
     Dates: start: 20230509, end: 20230509
  5. PEMBROLIZUMAB [Suspect]
     Active Substance: PEMBROLIZUMAB
     Indication: Non-small cell lung cancer stage IV
     Dosage: 200 MILLIGRAM, 1Q3W
     Route: 042
     Dates: start: 20230410, end: 20230410
  6. PEMBROLIZUMAB [Suspect]
     Active Substance: PEMBROLIZUMAB
     Dosage: 200 MILLIGRAM, 1Q3W
     Route: 042
     Dates: start: 20230509
  7. HYDROXYZINE [Concomitant]
     Active Substance: HYDROXYZINE HYDROCHLORIDE
     Dosage: UNK
     Dates: start: 20230417
  8. CODEINE [Concomitant]
     Active Substance: CODEINE
     Dosage: UNK
     Dates: start: 20230417
  9. PEITEL [Concomitant]
     Dosage: UNK
     Dates: start: 20230417
  10. MOVICOL [Concomitant]
     Active Substance: POLYETHYLENE GLYCOL 3350\POTASSIUM CHLORIDE\SODIUM BICARBONATE\SODIUM CHLORIDE
     Dosage: UNK
     Dates: start: 20230417

REACTIONS (2)
  - Hepatitis [Recovered/Resolved]
  - Febrile neutropenia [Recovered/Resolved]

NARRATIVE: CASE EVENT DATE: 20230417
